FAERS Safety Report 4582124-1 (Version None)
Quarter: 2005Q1

REPORT INFORMATION
  Report Type: 
  Country: None (occurrence: None)
  Receive Date: 20050119
  Receipt Date: 20040224
  Transmission Date: 20050727
  Serious: Yes (Hospitalization)
  Sender: FDA-Public Use
  Company Number: A03200400578

PATIENT
  Age: 64 Year
  Sex: Female

DRUGS (7)
  1. PLAVIX [Suspect]
     Indication: ACUTE CORONARY SYNDROME
     Dosage: 75 MG QD - ORAL
     Route: 048
     Dates: start: 20031210, end: 20040224
  2. PLAVIX [Suspect]
     Indication: CARDIOVASCULAR DISORDER
     Dosage: 75 MG QD - ORAL
     Route: 048
     Dates: start: 20031210, end: 20040224
  3. DILTIAZEM HYDROCHLORIDE [Concomitant]
  4. ATENOLOL [Concomitant]
  5. FAMOTIDINE [Concomitant]
  6. FENOFIBRATE [Concomitant]
  7. ATORVASTATIN CALCIUM [Concomitant]

REACTIONS (2)
  - ACUTE CORONARY SYNDROME [None]
  - TRANSAMINASES INCREASED [None]
